FAERS Safety Report 5170564-1 (Version None)
Quarter: 2006Q4

REPORT INFORMATION
  Report Type: 
  Country: None (occurrence: None)
  Receive Date: 20061204
  Receipt Date: 20061122
  Transmission Date: 20070319
  Serious: Yes (Life-Threatening)
  Sender: FDA-Public Use
  Company Number: 2006-149905-NL

PATIENT
  Age: 32 Year
  Sex: Female

DRUGS (6)
  1. VECURONIUM BROMIDE [Suspect]
     Indication: HYPOTONIA
     Dosage: 6 MG ONCE INTRAVENOUS (NOS)
     Route: 042
     Dates: start: 20060502
  2. PROPOFOL [Suspect]
     Indication: INDUCTION OF ANAESTHESIA
     Dosage: 80 MG ONCE INTRAVENOUS (NOS)
     Route: 042
     Dates: start: 20060502
  3. LIDOCAINE [Suspect]
     Indication: SURGERY
     Dosage: 50 MG ONCE INTRAVENOUS (NOS)
     Route: 042
     Dates: start: 20060502
  4. CEFAZOLIN SODIUM [Suspect]
     Indication: SURGERY
     Dosage: 1 G ONCE INTRAVENOUS DRIP
     Route: 041
     Dates: start: 20060502, end: 20060502
  5. SEVOFLURANE [Concomitant]
  6. NITROGEN MONOXIDE [Concomitant]

REACTIONS (3)
  - ANAPHYLACTOID REACTION [None]
  - BLOOD PRESSURE DECREASED [None]
  - ERYTHEMA [None]
